FAERS Safety Report 5312382-7 (Version None)
Quarter: 2007Q2

REPORT INFORMATION
  Report Type: 
  Country: None (occurrence: None)
  Receive Date: 20070430
  Receipt Date: 20061129
  Transmission Date: 20071010
  Serious: No
  Sender: FDA-Public Use
  Company Number: 2006UW26790

PATIENT
  Age: 83 Year
  Sex: Female
  Weight: 89.4 kg

DRUGS (2)
  1. NEXIUM [Suspect]
     Indication: GASTROOESOPHAGEAL REFLUX DISEASE
     Route: 048
     Dates: start: 20020101
  2. ACIPHEX [Concomitant]

REACTIONS (4)
  - DRUG INEFFECTIVE [None]
  - GLOSSODYNIA [None]
  - LOCAL SWELLING [None]
  - THROAT IRRITATION [None]
